FAERS Safety Report 5368445-3 (Version None)
Quarter: 2007Q2

REPORT INFORMATION
  Report Type: 
  Country: None (occurrence: None)
  Receive Date: 20070620
  Receipt Date: 20070605
  Transmission Date: 20071010
  Serious: Yes (Death)
  Sender: FDA-Public Use
  Company Number: 2007S1005034

PATIENT
  Age: 44 Year
  Sex: Male
  Weight: 75 kg

DRUGS (9)
  1. FLUPHENAZINE HYDROCHLORIDE [Suspect]
     Dosage: 40 MG; DAILY; ORAL
     Route: 048
  2. HALOPERIDOL [Suspect]
     Dosage: 12 MG; DAILY;ORAL
     Route: 048
  3. ALPRAZOLAM [Suspect]
     Dosage: 6 MG;DAILY;ORAL
     Route: 048
  4. DIAZEPAM [Suspect]
     Dosage: 30 MG; DAILY; ORAL
     Route: 048
  5. PAROXETINE [Suspect]
     Dosage: 20 MG; DAILY; ORAL
     Route: 048
  6. OLANZAPINE [Suspect]
     Dosage: 30 MG; DAILY; ORAL
     Route: 048
  7. FLUPHENAZINE DECANOATE [Suspect]
     Dosage: 25 MG; INTRAMUSCULAR
     Route: 030
  8. BIPERIDEN HYDROCHLORIDE TAB [Suspect]
     Dosage: 6 MG; DAILY; ORAL
     Route: 048
  9. BROMAZEPAM (BROMAZEPAM) [Suspect]
     Dosage: 36 MG;DAILY;ORAL
     Route: 048

REACTIONS (15)
  - BLOOD CHLORIDE DECREASED [None]
  - BRADYPNOEA [None]
  - BRAIN OEDEMA [None]
  - CARDIAC ARREST [None]
  - DRUG INTERACTION [None]
  - HYPERGLYCAEMIA [None]
  - HYPONATRAEMIA [None]
  - HYPOTENSION [None]
  - HYPOVENTILATION [None]
  - INAPPROPRIATE ANTIDIURETIC HORMONE SECRETION [None]
  - KETONURIA [None]
  - LOSS OF CONSCIOUSNESS [None]
  - METABOLIC DISORDER [None]
  - PANCREATITIS HAEMORRHAGIC [None]
  - PAPILLOEDEMA [None]
